FAERS Safety Report 5794756-3 (Version None)
Quarter: 2008Q2

REPORT INFORMATION
  Report Type: 
  Country: None (occurrence: None)
  Receive Date: 20080630
  Receipt Date: 20080620
  Transmission Date: 20081010
  Serious: Yes (Hospitalization)
  Sender: FDA-Public Use
  Company Number: GB-AMGEN-US289975

PATIENT
  Sex: Male

DRUGS (1)
  1. ENBREL [Suspect]
     Indication: DRUG USE FOR UNKNOWN INDICATION
     Route: 058
     Dates: start: 20080420, end: 20080601

REACTIONS (5)
  - HEADACHE [None]
  - PSEUDOLYMPHOMA [None]
  - SWELLING [None]
  - VASCULITIS CEREBRAL [None]
  - WEGENER'S GRANULOMATOSIS [None]
